FAERS Safety Report 12875819 (Version 1)
Quarter: 2016Q4

REPORT INFORMATION
  Report Type: Spontaneous
  Country: US (occurrence: US)
  Receive Date: 20161024
  Receipt Date: 20161024
  Transmission Date: 20170207
  Serious: No
  Sender: FDA-Public Use
  Company Number: US-JAZZ-2016-US-014870

PATIENT
  Sex: Female

DRUGS (24)
  1. VALIUM [Concomitant]
     Active Substance: DIAZEPAM
  2. LISINOPRIL. [Concomitant]
     Active Substance: LISINOPRIL
  3. SILENOR [Concomitant]
     Active Substance: DOXEPIN HYDROCHLORIDE
  4. GABAPENTIN. [Suspect]
     Active Substance: GABAPENTIN
     Indication: PRODUCT USED FOR UNKNOWN INDICATION
  5. NEURONTIN [Concomitant]
     Active Substance: GABAPENTIN
  6. SEROQUEL [Suspect]
     Active Substance: QUETIAPINE FUMARATE
     Indication: PRODUCT USED FOR UNKNOWN INDICATION
  7. LITHIUM CARBONATE. [Concomitant]
     Active Substance: LITHIUM CARBONATE
  8. OGESTREL-28 [Concomitant]
  9. LUTERA [Concomitant]
     Active Substance: ETHINYL ESTRADIOL\LEVONORGESTREL
  10. LORAZEPAM. [Concomitant]
     Active Substance: LORAZEPAM
  11. NORTRIPTYLINE HCL [Concomitant]
     Active Substance: NORTRIPTYLINE HYDROCHLORIDE
  12. XYREM [Suspect]
     Active Substance: SODIUM OXYBATE
     Dosage: 4.5 G, SECOND DOSE
     Route: 048
     Dates: start: 201507
  13. NUVIGIL [Concomitant]
     Active Substance: ARMODAFINIL
  14. PRISTIQ EXTENDED-RELEASE [Concomitant]
     Active Substance: DESVENLAFAXINE SUCCINATE
  15. XANAX [Concomitant]
     Active Substance: ALPRAZOLAM
  16. ZOLPIDEM TARTRATE. [Concomitant]
     Active Substance: ZOLPIDEM TARTRATE
  17. BRINTELLIX [Concomitant]
     Active Substance: VORTIOXETINE HYDROBROMIDE
  18. BYSTOLIC [Concomitant]
     Active Substance: NEBIVOLOL HYDROCHLORIDE
  19. LAMICTAL [Concomitant]
     Active Substance: LAMOTRIGINE
  20. XYREM [Suspect]
     Active Substance: SODIUM OXYBATE
     Indication: CATAPLEXY
     Dosage: DOSE ADJUSTMENTS
     Route: 048
     Dates: start: 201301, end: 201507
  21. PAXIL [Concomitant]
     Active Substance: PAROXETINE HYDROCHLORIDE
  22. SYNTHROID [Concomitant]
     Active Substance: LEVOTHYROXINE SODIUM
  23. XYREM [Suspect]
     Active Substance: SODIUM OXYBATE
     Indication: NARCOLEPSY
     Dosage: 2.25 G, BID
     Dates: start: 201301, end: 201301
  24. XYREM [Suspect]
     Active Substance: SODIUM OXYBATE
     Dosage: 5 G, FIRST DOSE
     Route: 048
     Dates: start: 201507

REACTIONS (3)
  - Panic attack [Not Recovered/Not Resolved]
  - Labelled drug-drug interaction medication error [Unknown]
  - Condition aggravated [Not Recovered/Not Resolved]
